FAERS Safety Report 4658218-9 (Version None)
Quarter: 2005Q2

REPORT INFORMATION
  Report Type: 
  Country: None (occurrence: None)
  Receive Date: 20050505
  Receipt Date: 20050215
  Transmission Date: 20051028
  Serious: No
  Sender: FDA-Public Use
  Company Number: 2005USFACT00323

PATIENT
  Age: 30 Year
  Sex: Female
  Weight: 52.2 kg

DRUGS (2)
  1. FACTIVE [Suspect]
     Indication: RESPIRATORY TRACT INFECTION BACTERIAL
     Dosage: 320.00 MG, QD, ORAL
     Route: 048
     Dates: start: 20050210, end: 20050210
  2. PREMARIN [Concomitant]

REACTIONS (2)
  - RASH MACULO-PAPULAR [None]
  - URTICARIA GENERALISED [None]
